FAERS Safety Report 7365932-3 (Version None)
Quarter: 2011Q1

REPORT INFORMATION
  Report Type: 
  Country: None (occurrence: None)
  Receive Date: 20110322
  Receipt Date: 20110222
  Transmission Date: 20110831
  Serious: Yes (Hospitalization, Other)
  Sender: FDA-Public Use
  Company Number: US-BAYER-201034239NA

PATIENT
  Sex: Female

DRUGS (8)
  1. MINOCYCLINE HCL [Concomitant]
     Dosage: UNK UNK, BID
  2. YAZ [Suspect]
     Indication: ACNE
  3. YASMIN [Suspect]
     Indication: ACNE
  4. YAZ [Suspect]
     Indication: DYSMENORRHOEA
  5. ASPIRIN [Concomitant]
     Dosage: 81 MG, QD
  6. YASMIN [Suspect]
     Indication: DYSMENORRHOEA
  7. YAZ [Suspect]
     Indication: MENORRHAGIA
     Route: 048
     Dates: end: 20080901
  8. YASMIN [Suspect]
     Indication: MENORRHAGIA
     Route: 048

REACTIONS (2)
  - PAIN [None]
  - CEREBROVASCULAR ACCIDENT [None]
